FAERS Safety Report 5414953-6 (Version None)
Quarter: 2007Q3

REPORT INFORMATION
  Report Type: 
  Country: None (occurrence: None)
  Receive Date: 20070813
  Receipt Date: 20070813
  Transmission Date: 20080115
  Serious: Yes (Life-Threatening, Other)
  Sender: FDA-Public Use
  Company Number: None

PATIENT
  Age: 77 Year
  Sex: Male
  Weight: 61.2356 kg

DRUGS (2)
  1. OXYBUTYNIN CHLORIDE [Suspect]
     Indication: BLADDER DISORDER
     Dosage: 5MG  1 OR 2/DAY MOUTH
     Route: 048
     Dates: start: 20070722
  2. OXYBUTYNIN CHLORIDE [Suspect]
     Indication: BLADDER DISORDER
     Dosage: 5MG  1 OR 2/DAY MOUTH
     Route: 048
     Dates: start: 20070723

REACTIONS (7)
  - ASTHENIA [None]
  - DIZZINESS [None]
  - FEELING ABNORMAL [None]
  - LETHARGY [None]
  - PAIN [None]
  - SOMNOLENCE [None]
  - VISION BLURRED [None]
